FAERS Safety Report 15130761 (Version 1)
Quarter: 2018Q3

REPORT INFORMATION
  Report Type: Spontaneous
  Country: BR (occurrence: BR)
  Receive Date: 20180711
  Receipt Date: 20180711
  Transmission Date: 20181010
  Serious: Yes (Hospitalization, Other)
  Sender: FDA-Public Use
  Company Number: BR-BAXTER-2018BAX018910

PATIENT
  Age: 44 Year
  Sex: Male
  Weight: 92.5 kg

DRUGS (14)
  1. GENUXAL [Suspect]
     Active Substance: CYCLOPHOSPHAMIDE
     Indication: B-CELL TYPE ACUTE LEUKAEMIA
     Dosage: GRAAL 2003 PROTOCOL, REMISSION INDUCTION
     Dates: start: 20170728
  2. GENUXAL [Suspect]
     Active Substance: CYCLOPHOSPHAMIDE
     Dosage: GRAAL 2003 PROTOCOL, CONSOLIDATION BLOCK 3
     Dates: start: 20171018
  3. ETOPOSIDE. [Suspect]
     Active Substance: ETOPOSIDE
     Indication: B-CELL TYPE ACUTE LEUKAEMIA
     Dosage: SECOND SALVAGE THERAPY MEC
     Route: 065
     Dates: start: 20180419
  4. ARA?C [Suspect]
     Active Substance: CYTARABINE
     Indication: B-CELL TYPE ACUTE LEUKAEMIA
     Dosage: HIGH DOSE, SALVAGE THERAPY FLAG?IDA
     Route: 065
     Dates: start: 20180216
  5. MITOXANTRONE [Suspect]
     Active Substance: MITOXANTRONE HYDROCHLORIDE
     Indication: B-CELL TYPE ACUTE LEUKAEMIA
     Dosage: SECOND SALVAGE THERAPY MEC
     Route: 065
     Dates: start: 20180419
  6. GENUXAL [Suspect]
     Active Substance: CYCLOPHOSPHAMIDE
     Dosage: GRAAL 2003 PROTOCOL, CONSOLIDATION BLOCK 6
     Dates: start: 20180103
  7. GENUXAL [Suspect]
     Active Substance: CYCLOPHOSPHAMIDE
     Dosage: GRAAL 2003 PROTOCOL, CONSOLIDATION BLOCK 1
     Dates: start: 20170906
  8. GENUXAL [Suspect]
     Active Substance: CYCLOPHOSPHAMIDE
     Dosage: GRAAL 2003 PROTOCOL, CONSOLIDATION BLOCK 5
     Dates: start: 20171206
  9. GRANULOCYTE COLONY STIMULATING FACTOR [Suspect]
     Active Substance: GRANULOCYTE COLONY-STIMULATING FACTOR NOS
     Indication: B-CELL TYPE ACUTE LEUKAEMIA
     Dosage: SALVAGE THERAPY FLAG?IDA
     Route: 065
     Dates: start: 20180216
  10. FLUDARABINE [Suspect]
     Active Substance: FLUDARABINE PHOSPHATE
     Indication: B-CELL TYPE ACUTE LEUKAEMIA
     Dosage: SALVAGE THERAPY FLAG?IDA
     Route: 065
     Dates: start: 20180216
  11. IDARUBICINE [Suspect]
     Active Substance: IDARUBICIN
     Indication: B-CELL TYPE ACUTE LEUKAEMIA
     Dosage: SALVAGE THERAPY FLAG?IDA
     Route: 065
     Dates: start: 20180216
  12. GENUXAL [Suspect]
     Active Substance: CYCLOPHOSPHAMIDE
     Dosage: GRAAL 2003 PROTOCOL, CONSOLIDATION BLOCK 2
     Dates: start: 20170927
  13. CYTARABINE. [Suspect]
     Active Substance: CYTARABINE
     Indication: B-CELL TYPE ACUTE LEUKAEMIA
     Dosage: INTERMEDIATE?DOSE, SECOND  SALVAGE THERAPY MEC
     Route: 065
     Dates: start: 20180419
  14. GENUXAL [Suspect]
     Active Substance: CYCLOPHOSPHAMIDE
     Dosage: GRAAL 2003 PROTOCOL, CONSOLIDATION BLOCK 4
     Dates: start: 20171109

REACTIONS (11)
  - Klebsiella sepsis [Unknown]
  - Candida sepsis [Unknown]
  - Drug ineffective [Unknown]
  - Neutropenic colitis [Recovered/Resolved]
  - Septic shock [Unknown]
  - Acute lymphocytic leukaemia recurrent [Unknown]
  - Staphylococcal sepsis [Recovered/Resolved]
  - Sepsis [Recovered/Resolved]
  - Device related sepsis [Recovered/Resolved]
  - Febrile neutropenia [Unknown]
  - Mucosal inflammation [Unknown]

NARRATIVE: CASE EVENT DATE: 2017
